FAERS Safety Report 21760607 (Version 5)
Quarter: 2023Q1

REPORT INFORMATION
  Report Type: Spontaneous
  Country: US (occurrence: US)
  Receive Date: 20221221
  Receipt Date: 20230201
  Transmission Date: 20230418
  Serious: No
  Sender: FDA-Public Use
  Company Number: US-PFIZER INC-202201369156

PATIENT
  Age: 9 Year
  Sex: Male
  Weight: 27.22 kg

DRUGS (1)
  1. SOMATROPIN [Suspect]
     Active Substance: SOMATROPIN
     Indication: Growth hormone deficiency
     Dosage: 0.4 MG, 1X/DAY (NIGHTLY)
     Dates: start: 202006

REACTIONS (3)
  - Body height decreased [Unknown]
  - Product quality issue [Unknown]
  - Device leakage [Unknown]

NARRATIVE: CASE EVENT DATE: 20221211
